FAERS Safety Report 5664589-7 (Version None)
Quarter: 2008Q1

REPORT INFORMATION
  Report Type: 
  Country: None (occurrence: None)
  Receive Date: 20080314
  Receipt Date: 20080128
  Transmission Date: 20080703
  Serious: Yes (Death)
  Sender: FDA-Public Use
  Company Number: US-TYCO HEALTHCARE/MALLINCKRODT-T200800341

PATIENT

DRUGS (9)
  1. RESTORIL [Suspect]
     Route: 048
  2. PROPAFENONE HCL [Suspect]
     Route: 048
  3. CARDIAC GLYCOSIDES [Suspect]
     Route: 048
  4. CARVEDILOL [Suspect]
     Route: 048
  5. ACETAMINOPHEN WITH OPIOID [Suspect]
     Route: 048
  6. OXAZEPAM [Suspect]
     Route: 048
  7. POTASSIUM-SPARING AGENTS [Suspect]
     Route: 048
  8. WARFARIN SODIUM [Suspect]
     Route: 048
  9. IBUPROFEN [Suspect]
     Route: 048

REACTIONS (2)
  - CARDIO-RESPIRATORY ARREST [None]
  - COMPLETED SUICIDE [None]
